FAERS Safety Report 6492654-3 (Version None)
Quarter: 2009Q4

REPORT INFORMATION
  Report Type: 
  Country: None (occurrence: None)
  Receive Date: 20091209
  Receipt Date: 20091130
  Transmission Date: 20100525
  Serious: Yes (Death)
  Sender: FDA-Public Use
  Company Number: 430015J09USA

PATIENT
  Age: 75 Year
  Sex: Male

DRUGS (2)
  1. NOVANTRONE [Suspect]
     Indication: MULTIPLE SCLEROSIS
     Dates: start: 20050101
  2. CHEMOTHERAPY DRUG, NOT SPECIFIED(OTHER CHEMOTHERAPEUTICS) [Suspect]
     Dosage: 1 IN 3 MONTHS
     Dates: start: 20060101

REACTIONS (3)
  - BLOOD DISORDER [None]
  - DRUG INEFFECTIVE [None]
  - MULTIPLE SCLEROSIS [None]
